FAERS Safety Report 14504269 (Version 1)
Quarter: 2018Q1

REPORT INFORMATION
  Report Type: Spontaneous
  Country: US (occurrence: US)
  Receive Date: 20180208
  Receipt Date: 20180208
  Transmission Date: 20180509
  Serious: No
  Sender: FDA-Public Use
  Company Number: US-JNJFOC-20171206145

PATIENT
  Age: 36 Month
  Sex: Male

DRUGS (1)
  1. CHILDRENS TYLENOL [Suspect]
     Active Substance: ACETAMINOPHEN
     Indication: ACCIDENTAL EXPOSURE TO PRODUCT
     Dosage: POSSIBLE 1/4 TO 1/3 OF THE BOTTLE
     Route: 048
     Dates: start: 20171202

REACTIONS (3)
  - Accidental exposure to product [Unknown]
  - Accidental exposure to product by child [None]
  - Expired product administered [None]

NARRATIVE: CASE EVENT DATE: 20171202
